FAERS Safety Report 10813198 (Version 2)
Quarter: 2017Q1

REPORT INFORMATION
  Report Type: Spontaneous
  Country: US (occurrence: US)
  Receive Date: 20150218
  Receipt Date: 20170131
  Transmission Date: 20170428
  Serious: Yes (Other)
  Sender: FDA-Public Use
  Company Number: US-ABBVIE-14K-163-1273341-00

PATIENT
  Age: 61 Year
  Sex: Male

DRUGS (2)
  1. HUMIRA [Suspect]
     Active Substance: ADALIMUMAB
     Indication: CROHN^S DISEASE
     Route: 058
     Dates: start: 20130509, end: 20130717
  2. 6-MP [Concomitant]
     Active Substance: MERCAPTOPURINE
     Indication: PRODUCT USED FOR UNKNOWN INDICATION
     Route: 048
     Dates: start: 201211, end: 20140804

REACTIONS (13)
  - Arthropathy [Unknown]
  - Lumbar spinal stenosis [Unknown]
  - Muscular weakness [Unknown]
  - Peroneal nerve palsy [Unknown]
  - Confusional state [Unknown]
  - Palpitations [Unknown]
  - Joint arthroplasty [Unknown]
  - Dizziness [Unknown]
  - Spinal column stenosis [Unknown]
  - Fasciotomy [Unknown]
  - Electromyogram abnormal [Unknown]
  - Multifocal motor neuropathy [Unknown]
  - Joint arthroplasty [Unknown]

NARRATIVE: CASE EVENT DATE: 20130701
